FAERS Safety Report 10689931 (Version 1)
Quarter: 2015Q1

REPORT INFORMATION
  Report Type: Spontaneous
  Country: US (occurrence: None)
  Receive Date: 20150102
  Receipt Date: 20150102
  Transmission Date: 20150720
  Serious: Yes (Hospitalization)
  Sender: FDA-Public Use
  Company Number: None

PATIENT
  Age: 56 Year
  Sex: Male
  Weight: 100.7 kg

DRUGS (2)
  1. CITALOPRAM [Suspect]
     Active Substance: CITALOPRAM HYDROBROMIDE
     Indication: DEPRESSION
     Route: 048
     Dates: start: 20070621, end: 20141112
  2. CIMETIDINE [Suspect]
     Active Substance: CIMETIDINE
     Route: 048
     Dates: start: 20140901, end: 20141112

REACTIONS (4)
  - Electrocardiogram QT prolonged [None]
  - Serotonin syndrome [None]
  - Acute kidney injury [None]
  - Confusional state [None]

NARRATIVE: CASE EVENT DATE: 20141112
